FAERS Safety Report 6815651-4 (Version None)
Quarter: 2010Q3

REPORT INFORMATION
  Report Type: 
  Country: None (occurrence: None)
  Receive Date: 20100702
  Receipt Date: 20100701
  Transmission Date: 20110219
  Serious: Yes (Hospitalization, Other)
  Sender: FDA-Public Use
  Company Number: BE-ABBOTT-10P-013-0654213-00

PATIENT
  Sex: Female

DRUGS (9)
  1. HUMIRA [Suspect]
     Indication: RHEUMATOID ARTHRITIS
     Dates: start: 20070328, end: 20100401
  2. FOLIC ACID [Concomitant]
     Indication: PRODUCT USED FOR UNKNOWN INDICATION
  3. LEDERTREXATE [Concomitant]
     Indication: RHEUMATOID ARTHRITIS
     Dates: start: 20020101
  4. ELTHYRONE [Concomitant]
     Indication: PRODUCT USED FOR UNKNOWN INDICATION
  5. ELTHYRONE [Concomitant]
  6. VASEXTEN [Concomitant]
     Indication: PRODUCT USED FOR UNKNOWN INDICATION
  7. PRAVASTATIN [Concomitant]
     Indication: PRODUCT USED FOR UNKNOWN INDICATION
  8. PRETARAX [Concomitant]
     Indication: PRODUCT USED FOR UNKNOWN INDICATION
  9. DAFALGAN [Concomitant]
     Indication: PRODUCT USED FOR UNKNOWN INDICATION
     Dosage: SOMETIMES

REACTIONS (7)
  - ATRIAL FIBRILLATION [None]
  - HYPOSIDERAEMIA [None]
  - HYPOTHYROIDISM [None]
  - NAUSEA [None]
  - RENAL ATROPHY [None]
  - RESPIRATORY FAILURE [None]
  - TUBERCULOSIS [None]
